FAERS Safety Report 11822421 (Version 1)
Quarter: 2015Q4

REPORT INFORMATION
  Report Type: Spontaneous
  Country: US (occurrence: US)
  Receive Date: 20151210
  Receipt Date: 20151210
  Transmission Date: 20160305
  Serious: Yes (Other)
  Sender: FDA-Public Use
  Company Number: PHHY2015US159113

PATIENT
  Age: 34 Year
  Sex: Female

DRUGS (1)
  1. ACETYLSALICYLIC ACID [Suspect]
     Active Substance: ASPIRIN
     Indication: ASPIRIN-EXACERBATED RESPIRATORY DISEASE
     Route: 065

REACTIONS (1)
  - Drug ineffective [Unknown]
